FAERS Safety Report 6814762-7 (Version None)
Quarter: 2010Q3

REPORT INFORMATION
  Report Type: 
  Country: None (occurrence: None)
  Receive Date: 20100702
  Receipt Date: 20100622
  Transmission Date: 20110219
  Serious: Yes (Hospitalization)
  Sender: FDA-Public Use
  Company Number: BE-ROCHE-684126

PATIENT
  Sex: Female
  Weight: 36 kg

DRUGS (1)
  1. CAPECITABINE [Suspect]
     Indication: COLON CANCER STAGE III
     Dosage: FREQUENCY: BID D1-D14 AND ONE WEEK REST Q3W WAS STARTED.
     Route: 048
     Dates: start: 20091005, end: 20100405

REACTIONS (8)
  - C-REACTIVE PROTEIN INCREASED [None]
  - DEEP VEIN THROMBOSIS [None]
  - GASTRIC DILATATION [None]
  - GASTRIC DISORDER [None]
  - GASTRIC VOLVULUS [None]
  - INTESTINAL OBSTRUCTION [None]
  - LIPASE INCREASED [None]
  - SUBILEUS [None]
